FAERS Safety Report 4796551-0 (Version None)
Quarter: 2005Q3

REPORT INFORMATION
  Report Type: 
  Country: None (occurrence: None)
  Receive Date: 20050916
  Receipt Date: 20041209
  Transmission Date: 20060218
  Serious: Yes (Other)
  Sender: FDA-Public Use
  Company Number: US-JNJFOC-20041002921

PATIENT
  Age: 46 Year
  Sex: Female
  Weight: 80.2867 kg

DRUGS (1)
  1. TOPAMAX [Suspect]
     Dosage: 25 MG, 2 IN 1 DAY, ORAL
     Route: 048
     Dates: start: 20040901, end: 20041001

REACTIONS (1)
  - ANGLE CLOSURE GLAUCOMA [None]
